FAERS Safety Report 8879495 (Version 1)
Quarter: 2012Q4

REPORT INFORMATION
  Report Type: 
  Country: DE (occurrence: DE)
  Receive Date: 20121031
  Receipt Date: 20121031
  Transmission Date: 20130627
  Serious: Yes (Hospitalization)
  Sender: FDA-Public Use
  Company Number: DE-TEVA-365390GER

PATIENT
  Age: 69 Year
  Sex: Female

DRUGS (1)
  1. METOPROLOL [Suspect]
     Indication: HYPERTENSION
     Dosage: 100 Milligram Daily;
     Route: 048

REACTIONS (2)
  - IIIrd nerve paresis [Recovering/Resolving]
  - Central nervous system inflammation [Recovered/Resolved]
